FAERS Safety Report 4527656-7 (Version None)
Quarter: 2004Q4

REPORT INFORMATION
  Report Type: 
  Country: None (occurrence: None)
  Receive Date: 20041215
  Receipt Date: 20041130
  Transmission Date: 20050328
  Serious: Yes (Disabling, Other)
  Sender: FDA-Public Use
  Company Number: US-GLAXOSMITHKLINE-A0535647A

PATIENT
  Age: 86 Year
  Sex: Male
  Weight: 62.7 kg

DRUGS (2)
  1. ECOTRIN ADULT LOW STRENGTH TABLETS [Suspect]
     Indication: CEREBROVASCULAR ACCIDENT PROPHYLAXIS
     Route: 048
     Dates: start: 19960101
  2. MULTIVITAMIN [Concomitant]
     Indication: HYPOVITAMINOSIS
     Route: 048

REACTIONS (8)
  - CONTUSION [None]
  - FALL [None]
  - HAEMORRHAGIC DIATHESIS [None]
  - JOINT DISLOCATION [None]
  - PIGMENTATION DISORDER [None]
  - SKIN LACERATION [None]
  - THROAT CANCER [None]
  - WALKING AID USER [None]
